FAERS Safety Report 9752090 (Version 1)
Quarter: 2013Q4

REPORT INFORMATION
  Report Type: Report from Study
  Country: AU (occurrence: AU)
  Receive Date: 20131213
  Receipt Date: 20131213
  Transmission Date: 20140711
  Serious: Yes (Other)
  Sender: FDA-Public Use
  Company Number: PHHY2013AU145566

PATIENT
  Age: 76 Year
  Sex: Female

DRUGS (6)
  1. ACLASTA [Suspect]
     Dosage: 5 MG, UNK
     Route: 042
     Dates: start: 20121219
  2. CIPRAMIL [Concomitant]
     Dosage: 1 TABLET (20 MG), IN THE EVENING
  3. COVERAM [Concomitant]
     Dosage: 1 TABLET (5 MG), DAILY
  4. SERETIDE MDI [Concomitant]
     Dosage: 2 UKN, BID
  5. SPIRIVA [Concomitant]
     Dosage: 1 CAPSULE (18 UG), DAILY
  6. VENTOLIN [Concomitant]
     Dosage: 2 PUFF, AS REQUIRED (NO MORE THAN 4 OER DAY)

REACTIONS (2)
  - Pertussis [Unknown]
  - Depression [Unknown]
